FAERS Safety Report 8254074-0 (Version None)
Quarter: 2012Q2

REPORT INFORMATION
  Report Type: 
  Country: None (occurrence: None)
  Receive Date: 20120402
  Receipt Date: 20120320
  Transmission Date: 20120825
  Serious: No
  Sender: FDA-Public Use
  Company Number: US-AMGEN-USASP2012017957

PATIENT
  Age: 56 Year
  Sex: Female

DRUGS (2)
  1. ENBREL [Suspect]
     Indication: RHEUMATOID ARTHRITIS
     Dosage: 50 MG, QWK
     Dates: start: 20120307
  2. TREXALL [Concomitant]
     Dosage: 2.5 MILLIGRAMS, 3 TABLETS IN THE AM AND PM ON SATURDAYS
     Dates: start: 20110101

REACTIONS (11)
  - HEADACHE [None]
  - DEHYDRATION [None]
  - BURNING SENSATION [None]
  - ASTHENIA [None]
  - DYSARTHRIA [None]
  - ABDOMINAL DISCOMFORT [None]
  - FEELING ABNORMAL [None]
  - FATIGUE [None]
  - DRY MOUTH [None]
  - HYPERSOMNIA [None]
  - BLOOD PRESSURE DECREASED [None]
